FAERS Safety Report 4582261-1 (Version None)
Quarter: 2005Q1

REPORT INFORMATION
  Report Type: 
  Country: None (occurrence: None)
  Receive Date: 20050127
  Receipt Date: 20041018
  Transmission Date: 20050727
  Serious: No
  Sender: FDA-Public Use
  Company Number: USA040979199

PATIENT
  Age: 6 Year
  Sex: Male
  Weight: 16 kg

DRUGS (5)
  1. STRATTERA [Suspect]
     Dosage: 18 MG/L DAY
     Dates: start: 20040901, end: 20041017
  2. ALBUTEROL [Concomitant]
  3. SINGULAIR (MONTELUKAST) [Concomitant]
  4. FLOVENT [Concomitant]
  5. XOPENEX [Concomitant]

REACTIONS (6)
  - ABNORMAL BEHAVIOUR [None]
  - CRYING [None]
  - HEADACHE [None]
  - IRRITABILITY [None]
  - MOOD ALTERED [None]
  - VOMITING [None]
